FAERS Safety Report 12179512 (Version 2)
Quarter: 2016Q2

REPORT INFORMATION
  Report Type: Spontaneous
  Country: CA (occurrence: CA)
  Receive Date: 20160315
  Receipt Date: 20160506
  Transmission Date: 20160815
  Serious: Yes (Other)
  Sender: FDA-Public Use
  Company Number: CA-PFIZER INC-2016150642

PATIENT
  Age: 2 Year
  Sex: Male

DRUGS (4)
  1. ADVIL PEDIATRIC DROPS [Suspect]
     Active Substance: IBUPROFEN
     Indication: PYREXIA
     Dosage: UNK
  2. ADVIL PEDIATRIC DROPS [Suspect]
     Active Substance: IBUPROFEN
     Dosage: UNK
  3. ADVIL PEDIATRIC DROPS [Suspect]
     Active Substance: IBUPROFEN
     Dosage: UNK
  4. ADVIL PEDIATRIC DROPS [Suspect]
     Active Substance: IBUPROFEN
     Dosage: UNK

REACTIONS (4)
  - Poor quality drug administered [Unknown]
  - Drug administration error [Unknown]
  - Seizure [Unknown]
  - Product quality issue [Unknown]
